FAERS Safety Report 8977036 (Version 5)
Quarter: 2014Q1

REPORT INFORMATION
  Report Type: Report from Study
  Country: US (occurrence: US)
  Receive Date: 20121220
  Receipt Date: 20140325
  Transmission Date: 20141002
  Serious: Yes (Hospitalization, Other)
  Sender: FDA-Public Use
  Company Number: US-US-EMD SERONO, INC.-7182269

PATIENT
  Age: 64 Year
  Sex: Female
  Weight: 90 kg

DRUGS (7)
  1. REBIF [Suspect]
     Indication: MULTIPLE SCLEROSIS
     Route: 058
     Dates: start: 20110902, end: 20120812
  2. REBIF [Suspect]
     Route: 058
     Dates: start: 20130712
  3. REBIF [Suspect]
     Route: 058
  4. REBIF [Suspect]
     Route: 058
  5. CITALOPRAM [Concomitant]
     Indication: DEPRESSION
  6. PROVIGIL [Concomitant]
     Indication: FATIGUE
  7. SIMVASTATIN [Concomitant]
     Indication: BLOOD CHOLESTEROL INCREASED

REACTIONS (7)
  - Ovarian cancer stage II [Not Recovered/Not Resolved]
  - Incisional hernia [Recovering/Resolving]
  - Ovarian cancer recurrent [Not Recovered/Not Resolved]
  - Rib fracture [Recovered/Resolved]
  - Neuropathy peripheral [Not Recovered/Not Resolved]
  - Pain in extremity [Not Recovered/Not Resolved]
  - Influenza like illness [Unknown]
